FAERS Safety Report 10252482 (Version 1)
Quarter: 2014Q2

REPORT INFORMATION
  Report Type: Spontaneous
  Country: FR (occurrence: FR)
  Receive Date: 20140623
  Receipt Date: 20140623
  Transmission Date: 20141212
  Serious: Yes (Other)
  Sender: FDA-Public Use
  Company Number: FR-PFIZER INC-2014166694

PATIENT
  Age: 35 Year
  Sex: Female

DRUGS (11)
  1. ARACYTINE [Suspect]
     Indication: ACUTE MYELOID LEUKAEMIA
     Dosage: UNK
     Dates: start: 20130820
  2. IDARUBICIN HCL [Suspect]
     Indication: ACUTE MYELOID LEUKAEMIA
     Dosage: UNK
     Dates: start: 20130820
  3. OXACILLIN [Concomitant]
  4. BACTRIM FORTE [Concomitant]
  5. ZELITREX [Concomitant]
  6. NOXAFIL [Concomitant]
  7. FOLINORAL [Concomitant]
  8. MAG 2 [Concomitant]
  9. DIFFU-K [Concomitant]
  10. MOTILIUM [Concomitant]
  11. CACIT D3 [Concomitant]

REACTIONS (3)
  - Bone marrow failure [Unknown]
  - Blood disorder [Unknown]
  - Graft versus host disease [Unknown]
